FAERS Safety Report 8846415 (Version 1)
Quarter: 2012Q4

REPORT INFORMATION
  Report Type: 
  Country: DE (occurrence: DE)
  Receive Date: 20121018
  Receipt Date: 20121018
  Transmission Date: 20130627
  Serious: Yes (Hospitalization)
  Sender: FDA-Public Use
  Company Number: DE-RANBAXY-2012R1-60974

PATIENT
  Age: 23 Year
  Sex: Female

DRUGS (2)
  1. MINOCYCLINE [Suspect]
     Indication: ROSACEA
     Dosage: 100 mg/day
     Route: 065
  2. MINOCYCLINE [Suspect]
     Indication: PRODUCT USED FOR UNKNOWN INDICATION
     Dosage: 50mg/day
     Route: 065

REACTIONS (1)
  - Acute hepatic failure [Recovering/Resolving]
